FAERS Safety Report 10045870 (Version 1)
Quarter: 2014Q1

REPORT INFORMATION
  Report Type: Spontaneous
  Country: US (occurrence: GB)
  Receive Date: 20140329
  Receipt Date: 20140329
  Transmission Date: 20141002
  Serious: Yes (Hospitalization)
  Sender: FDA-Public Use
  Company Number: 2013SP008261

PATIENT
  Age: 64 Year
  Sex: Female
  Weight: 50.3 kg

DRUGS (12)
  1. CISPLATIN [Suspect]
     Indication: GASTROOESOPHAGEAL CANCER
     Route: 042
     Dates: start: 20130325
  2. CAPECITABINE [Suspect]
     Indication: GASTROOESOPHAGEAL CANCER
     Route: 048
     Dates: start: 20130325, end: 20130619
  3. CAPECITABINE [Suspect]
     Indication: GASTROOESOPHAGEAL CANCER
     Route: 048
     Dates: start: 20130621
  4. RAMIPRIL [Suspect]
     Indication: HYPERTENSION
     Route: 048
     Dates: end: 20130622
  5. PLACEBO [Suspect]
     Indication: GASTROOESOPHAGEAL CANCER
     Route: 048
     Dates: start: 20130325, end: 20130620
  6. PLACEBO [Suspect]
     Indication: GASTROOESOPHAGEAL CANCER
     Route: 048
     Dates: start: 20130624
  7. DALTEPARIN [Concomitant]
     Indication: ANTICOAGULANT THERAPY
     Route: 058
     Dates: start: 20130620, end: 20130623
  8. METOCLOPRAMIDE [Concomitant]
     Indication: ANTIEMETIC SUPPORTIVE CARE
     Route: 048
     Dates: start: 20130325
  9. DEXAMETHASONE [Concomitant]
     Indication: ANTIEMETIC SUPPORTIVE CARE
     Route: 048
     Dates: start: 20130325, end: 20130622
  10. SIMVASTATIN [Concomitant]
     Indication: BLOOD CHOLESTEROL DECREASED
     Route: 048
     Dates: start: 20130301
  11. PANCREATIN [Concomitant]
     Indication: PANCREATIC INSUFFICIENCY
     Route: 048
  12. PARACETAMOL [Concomitant]
     Indication: ANALGESIC THERAPY
     Route: 048

REACTIONS (5)
  - Hypotension [Recovered/Resolved]
  - Vomiting [Recovered/Resolved]
  - Nausea [Recovered/Resolved]
  - Abdominal pain upper [Recovered/Resolved]
  - Dyspepsia [Recovered/Resolved]
